FAERS Safety Report 5365227-3 (Version None)
Quarter: 2007Q2

REPORT INFORMATION
  Report Type: 
  Country: None (occurrence: None)
  Receive Date: 20070530
  Receipt Date: 20070214
  Transmission Date: 20071010
  Serious: No
  Sender: FDA-Public Use
  Company Number: 2006PV019808

PATIENT
  Age: 61 Year
  Sex: Female
  Weight: 102.0593 kg

DRUGS (12)
  1. BYETTA [Suspect]
     Indication: DIABETES MELLITUS NON-INSULIN-DEPENDENT
     Dosage: SEE IMAGE
     Route: 058
     Dates: start: 20060814, end: 20060828
  2. BYETTA [Suspect]
     Indication: WEIGHT CONTROL
     Dosage: SEE IMAGE
     Route: 058
     Dates: start: 20060814, end: 20060828
  3. BYETTA [Suspect]
     Indication: DIABETES MELLITUS NON-INSULIN-DEPENDENT
     Dosage: SEE IMAGE
     Route: 058
     Dates: start: 20060829, end: 20060904
  4. BYETTA [Suspect]
     Indication: WEIGHT CONTROL
     Dosage: SEE IMAGE
     Route: 058
     Dates: start: 20060829, end: 20060904
  5. BYETTA [Suspect]
     Indication: DIABETES MELLITUS NON-INSULIN-DEPENDENT
     Dosage: SEE IMAGE
     Route: 058
     Dates: start: 20060817
  6. BYETTA [Suspect]
     Indication: WEIGHT CONTROL
     Dosage: SEE IMAGE
     Route: 058
     Dates: start: 20060817
  7. BYETTA [Suspect]
     Indication: DIABETES MELLITUS NON-INSULIN-DEPENDENT
     Dosage: SEE IMAGE
     Route: 058
     Dates: start: 20060814, end: 20060828
  8. BYETTA [Suspect]
     Indication: DIABETES MELLITUS NON-INSULIN-DEPENDENT
     Dosage: SEE IMAGE
     Route: 058
     Dates: start: 20060829, end: 20060904
  9. BYETTA [Suspect]
     Indication: DIABETES MELLITUS NON-INSULIN-DEPENDENT
     Dosage: SEE IMAGE
     Route: 058
     Dates: start: 20060817
  10. BYETTA [Suspect]
  11. GLIPIZIDE [Concomitant]
  12. PREMPRO [Concomitant]

REACTIONS (11)
  - ABDOMINAL PAIN UPPER [None]
  - ANOREXIA [None]
  - BLOOD GLUCOSE INCREASED [None]
  - HEADACHE [None]
  - HYPERSOMNIA [None]
  - INJECTION SITE BRUISING [None]
  - INJECTION SITE HAEMORRHAGE [None]
  - INJECTION SITE PAIN [None]
  - MALAISE [None]
  - NAUSEA [None]
  - SPEECH DISORDER [None]
